FAERS Safety Report 5249469-3 (Version None)
Quarter: 2007Q1

REPORT INFORMATION
  Report Type: 
  Country: None (occurrence: None)
  Receive Date: 20070228
  Receipt Date: 20061113
  Transmission Date: 20070707
  Serious: No
  Sender: FDA-Public Use
  Company Number: S2006US20229

PATIENT
  Sex: Female

DRUGS (2)
  1. VALTREX [Suspect]
  2. ACYCLOVIR [Suspect]

REACTIONS (2)
  - LOCAL SWELLING [None]
  - PRURITUS [None]
